FAERS Safety Report 8959609 (Version 1)
Quarter: 2012Q4

REPORT INFORMATION
  Report Type: 
  Country: NL (occurrence: NL)
  Receive Date: 20121212
  Receipt Date: 20121212
  Transmission Date: 20130627
  Serious: Yes (Other)
  Sender: FDA-Public Use
  Company Number: NL-AMGEN-NLDSP2012079637

PATIENT
  Age: 67 Year
  Sex: Female

DRUGS (10)
  1. ENBREL [Suspect]
     Indication: RHEUMATOID ARTHRITIS
     Dosage: 50 mg, per 5 days
     Dates: start: 2009
  2. ZALDIAR [Concomitant]
     Dosage: UNK UNK, UNK
  3. PANTOZOL [Concomitant]
     Dosage: UNK UNK, UNK
  4. PREDNISON [Concomitant]
     Dosage: UNK UNK, UNK
  5. SIMVASTATIN [Concomitant]
     Dosage: UNK UNK, UNK
  6. FOLIC ACID [Concomitant]
     Dosage: UNK UNK, UNK
  7. BISOPROLOL FUMARATE [Concomitant]
     Dosage: UNK UNK, UNK
  8. PAROXETINE [Concomitant]
     Dosage: UNK UNK, UNK
  9. ASCAL                              /00002702/ [Concomitant]
     Dosage: UNK UNK, UNK
  10. MTX                                /00113801/ [Concomitant]
     Dosage: UNK UNK, UNK

REACTIONS (1)
  - Myocardial infarction [Recovering/Resolving]
